FAERS Safety Report 10063376 (Version 1)
Quarter: 2014Q2

REPORT INFORMATION
  Report Type: Spontaneous
  Country: US (occurrence: US)
  Receive Date: 20140407
  Receipt Date: 20140407
  Transmission Date: 20141212
  Serious: Yes (Other)
  Sender: FDA-Public Use
  Company Number: US-B.I. PHARMACEUTICALS,INC./RIDGEFIELD-2014-BI-14936GD

PATIENT
  Age: 75 Year
  Sex: Male

DRUGS (10)
  1. PREDNISONE [Suspect]
     Indication: CROHN^S DISEASE
     Route: 065
  2. PREDNISONE [Suspect]
     Indication: OSTEOARTHRITIS
  3. RANITIDINE [Suspect]
     Indication: CROHN^S DISEASE
     Route: 065
  4. RANITIDINE [Suspect]
     Indication: OSTEOARTHRITIS
  5. COLAZAL [Suspect]
     Indication: CROHN^S DISEASE
     Route: 065
  6. COLAZAL [Suspect]
     Indication: OSTEOARTHRITIS
  7. IMURAN [Suspect]
     Indication: CROHN^S DISEASE
     Route: 065
  8. IMURAN [Suspect]
     Indication: OSTEOARTHRITIS
  9. REMICADE [Suspect]
     Indication: CROHN^S DISEASE
     Route: 065
  10. REMICADE [Suspect]
     Indication: OSTEOARTHRITIS

REACTIONS (2)
  - Strongyloidiasis [Recovered/Resolved]
  - Diarrhoea [Unknown]
